FAERS Safety Report 5371647-3 (Version None)
Quarter: 2007Q2

REPORT INFORMATION
  Report Type: 
  Country: None (occurrence: None)
  Receive Date: 20070627
  Receipt Date: 20070625
  Transmission Date: 20071010
  Serious: Yes (Life-Threatening, Hospitalization)
  Sender: FDA-Public Use
  Company Number: PHRM2007FR01719

PATIENT
  Age: 47 Year
  Sex: Male

DRUGS (7)
  1. CYCLOSPORINE [Suspect]
     Indication: LIVER TRANSPLANT
     Dosage: 175 MG DAILY
     Route: 048
     Dates: end: 20060501
  2. CYCLOSPORINE [Suspect]
     Dosage: 150 MG DAILY
     Route: 048
     Dates: start: 20060501, end: 20061116
  3. ALLOPURINOL [Suspect]
     Dosage: 100 MG PER DAY
     Route: 048
     Dates: end: 20061219
  4. DELURSAN [Suspect]
     Dosage: 250 MG, BID
     Route: 048
     Dates: end: 20061219
  5. ASPEGIC 325 [Suspect]
     Dosage: 100 MG DAILY
     Route: 048
     Dates: end: 20061219
  6. AZATHIOPRINE SODIUM [Suspect]
     Dosage: 100 MG DAILY
     Route: 048
     Dates: end: 20061219
  7. CERTICAN [Suspect]
     Indication: LIVER TRANSPLANT
     Dosage: 1.5 MG PER DAY
     Route: 048
     Dates: start: 20061116, end: 20061126

REACTIONS (6)
  - BONE MARROW MYELOGRAM ABNORMAL [None]
  - OEDEMA PERIPHERAL [None]
  - PANCYTOPENIA [None]
  - PSEUDOMONAS INFECTION [None]
  - RASH [None]
  - RENAL FAILURE [None]
